FAERS Safety Report 22758451 (Version 6)
Quarter: 2023Q4

REPORT INFORMATION
  Report Type: Report from Study
  Country: US (occurrence: US)
  Receive Date: 20230727
  Receipt Date: 20231121
  Transmission Date: 20240109
  Serious: Yes (Hospitalization, Other)
  Sender: FDA-Public Use
  Company Number: US-ACADIA PHARMACEUTICALS INC.-ACA-2023-TRF-002736

PATIENT
  Age: 34 Year
  Sex: Female
  Weight: 37 kg

DRUGS (21)
  1. DAYBUE [Suspect]
     Active Substance: TROFINETIDE
     Indication: Rett syndrome
     Dosage: 50 MILLILITER, BID, G-TUBE
     Dates: start: 202307
  2. TRAZODONE [Concomitant]
     Active Substance: TRAZODONE HYDROCHLORIDE
  3. PEPCID AC [Concomitant]
     Active Substance: FAMOTIDINE
  4. TYLENOL [Concomitant]
     Active Substance: ACETAMINOPHEN
     Indication: Pain
     Dosage: 325 MILLIGRAM, TID
     Route: 048
  5. TYLENOL [Concomitant]
     Active Substance: ACETAMINOPHEN
     Dosage: 650 MILLIGRAM, TID
     Route: 048
  6. LIORESAL [Concomitant]
     Active Substance: BACLOFEN
     Dosage: 10 MILLIGRAM, BID, PATIENT TAKING DIFFERENTLY: TAKE 10 MG BY MOUTH, 10 MG IN AM , 10 MG IN THE AFTER
     Route: 048
     Dates: start: 20141210
  7. CALCIUM\CHOLECALCIFEROL [Concomitant]
     Active Substance: CALCIUM\CHOLECALCIFEROL
     Dosage: TAKE 2 TABLETS BY MOUTH EVERY DAY, VVITAFUSION 2 GUMMIES
     Route: 048
  8. TUMS [Concomitant]
     Active Substance: CALCIUM CARBONATE
     Dosage: TAKE 2 TABLETS BY MOUTH 1 TIME A DAY AS NEEDED
     Route: 048
  9. PEPCID [Concomitant]
     Active Substance: FAMOTIDINE
     Dosage: TAKE 1 TABLET BY MOUTH EVERY EVENING
     Route: 048
  10. MIRALAX [Concomitant]
     Active Substance: POLYETHYLENE GLYCOL 3350
     Dosage: 17 GRAM, QD
     Route: 048
  11. PROBIOTICS NOS [Concomitant]
     Active Substance: PROBIOTICS NOS
     Dosage: TAKE 2 TABLETS BY MOUTH EVERY DAY. TAKES 2 GUMMIES DAILY
     Route: 048
  12. GAS-X [Concomitant]
     Active Substance: DIMETHICONE
     Dosage: TAKE 1 TABLET BY MOUTH 1 TIME A DAY AS NEEDED
     Route: 048
  13. DESYREL [Concomitant]
     Active Substance: TRAZODONE HYDROCHLORIDE
     Dosage: 100 MILLIGRAM, QD AT BEDTIME
     Dates: start: 20230220
  14. POTASSIUM CHLORIDE [Concomitant]
     Active Substance: POTASSIUM CHLORIDE
     Dosage: 30 MILLILITER, QD [1.3 MEQ/ML (10%) SOLUTION]
     Route: 048
  15. BACTRIM DS [Concomitant]
     Active Substance: SULFAMETHOXAZOLE\TRIMETHOPRIM
     Dosage: 800-160 MG 2 TIMES DAILY FOR 13 DAYS
     Route: 048
  16. ROXICODONE [Concomitant]
     Active Substance: OXYCODONE HYDROCHLORIDE
     Dosage: 5 MILLILITER EVERY 4 HOURS AS NEEDED
     Route: 048
  17. COLESTID [Concomitant]
     Active Substance: COLESTIPOL HYDROCHLORIDE
     Dosage: 5 GRAM, QD
     Route: 048
  18. DEPO-PROVERA [Concomitant]
     Active Substance: MEDROXYPROGESTERONE ACETATE
     Dosage: 1 MILLILITER IN MUSCLE EVERY 3 MONTHS
  19. ADVIL [Concomitant]
     Active Substance: IBUPROFEN
     Indication: Pain
     Dosage: 400-600 MG EVERY 6 HOURS FOR AS NEEDED
  20. PYRIDIUM [Concomitant]
     Active Substance: PHENAZOPYRIDINE
     Indication: Pain
  21. BACLOFEN [Concomitant]
     Active Substance: BACLOFEN
     Dosage: 10 MILLIGRAM IN THE MORNING UP TO 40 MG TOTAL PER DAY: TYPICALLY 10 MG AM, 20 MG PM
     Route: 048

REACTIONS (17)
  - Renal stone removal [Recovered/Resolved]
  - Ureteral stent insertion [Recovered/Resolved]
  - Cholecystectomy [Recovered/Resolved]
  - Cholelithiasis [Recovered/Resolved]
  - Cholangitis [Unknown]
  - Cystoscopy [Unknown]
  - Hydronephrosis [Unknown]
  - Urinary tract obstruction [Unknown]
  - Sepsis [Unknown]
  - Obstructive pancreatitis [Recovered/Resolved]
  - Pyelitis [Recovered/Resolved]
  - Nephrolithiasis [Not Recovered/Not Resolved]
  - Weight decreased [Not Recovered/Not Resolved]
  - Weight decreased [Unknown]
  - Drug ineffective [Unknown]
  - Diarrhoea [Recovering/Resolving]
  - Diarrhoea [Not Recovered/Not Resolved]

NARRATIVE: CASE EVENT DATE: 20230911
